FAERS Safety Report 4946282-9 (Version None)
Quarter: 2006Q1

REPORT INFORMATION
  Report Type: 
  Country: None (occurrence: None)
  Receive Date: 20060316
  Receipt Date: 20060316
  Transmission Date: 20060701
  Serious: Yes (Hospitalization)
  Sender: FDA-Public Use
  Company Number: None

PATIENT
  Age: 77 Year
  Sex: Male

DRUGS (1)
  1. VELCADE [Suspect]
     Indication: DIFFUSE LARGE B-CELL LYMPHOMA
     Dosage: 1.3 MG/M2  IV DRIP  DAY 1 + 4 OF 6 DAY CYCLE
     Route: 041

REACTIONS (3)
  - ARRHYTHMIA SUPRAVENTRICULAR [None]
  - PLATELET COUNT DECREASED [None]
  - TACHYCARDIA [None]
